FAERS Safety Report 7721856-0 (Version None)
Quarter: 2011Q3

REPORT INFORMATION
  Report Type: 
  Country: None (occurrence: None)
  Receive Date: 20110831
  Receipt Date: 20110824
  Transmission Date: 20111222
  Serious: Yes (Death)
  Sender: FDA-Public Use
  Company Number: US-BRISTOL-MYERS SQUIBB COMPANY-16000119

PATIENT
  Age: 45 Year
  Sex: Male

DRUGS (1)
  1. YERVOY [Suspect]

REACTIONS (4)
  - RENAL FAILURE [None]
  - CARDIAC FAILURE [None]
  - HEPATIC FAILURE [None]
  - SUDDEN DEATH [None]
